FAERS Safety Report 6860954-0 (Version None)
Quarter: 2010Q3

REPORT INFORMATION
  Report Type: 
  Country: None (occurrence: None)
  Receive Date: 20100712
  Receipt Date: 20100702
  Transmission Date: 20110219
  Serious: Yes (Hospitalization)
  Sender: FDA-Public Use
  Company Number: DSJ-2010-10957

PATIENT
  Age: 77 Year
  Sex: Female

DRUGS (3)
  1. OLMESARTAN MEDOXOMIL [Suspect]
     Indication: PRODUCT USED FOR UNKNOWN INDICATION
     Dosage: 20 MG, PER ORAL
     Route: 048
     Dates: start: 20100616, end: 20100702
  2. ACTOS (PIOGLITAZONE) (PIOGLITAZONE) [Concomitant]
  3. FUROSEMIDE [Concomitant]

REACTIONS (2)
  - OEDEMA [None]
  - PLEURAL EFFUSION [None]
